FAERS Safety Report 16379726 (Version 6)
Quarter: 2019Q4

REPORT INFORMATION
  Report Type: Report from Study
  Country: GT (occurrence: GT)
  Receive Date: 20190531
  Receipt Date: 20191112
  Transmission Date: 20200122
  Serious: Yes (Other)
  Sender: FDA-Public Use
  Company Number: PHHY2019GT077374

PATIENT
  Sex: Male
  Weight: 63 kg

DRUGS (9)
  1. MEDROL [Concomitant]
     Active Substance: METHYLPREDNISOLONE
     Dosage: EVERY 8 DAYS
     Route: 065
  2. SCAPHO [Suspect]
     Active Substance: SECUKINUMAB
     Dosage: UNK
     Route: 065
     Dates: start: 20190502
  3. SCAPHO [Suspect]
     Active Substance: SECUKINUMAB
     Dosage: 300 MG, QMO
     Route: 058
  4. METHOTREXATE. [Suspect]
     Active Substance: METHOTREXATE
     Dosage: 3 TABLET ON MONDAY AND 3 TABLETS ON FRIDAY
     Route: 065
  5. SCAPHO [Suspect]
     Active Substance: SECUKINUMAB
     Indication: PSORIASIS
     Dosage: 300 MG, QW
     Route: 058
     Dates: start: 20190307
  6. METHOTREXATE. [Suspect]
     Active Substance: METHOTREXATE
     Indication: DRUG TOLERANCE
     Dosage: 4 DF, QW TABLETS EVERY SATURDAY (2 AT 8:00 AM AND 2 AT 2:00 PM)
     Route: 065
  7. BABE [Concomitant]
     Indication: DRY SKIN
     Route: 065
  8. MEDROL [Concomitant]
     Active Substance: METHYLPREDNISOLONE
     Indication: PRODUCT USED FOR UNKNOWN INDICATION
     Dosage: UNK UNK, QD
     Route: 065
  9. FOLIMEN [Concomitant]
     Indication: PRODUCT USED FOR UNKNOWN INDICATION
     Dosage: 1 DF, QD
     Route: 065

REACTIONS (26)
  - Diabetes mellitus [Unknown]
  - Anxiety [Unknown]
  - Depression [Not Recovered/Not Resolved]
  - Temperature intolerance [Unknown]
  - Skin fissures [Unknown]
  - Tremor [Unknown]
  - White blood cell count increased [Unknown]
  - Blindness [Unknown]
  - Chills [Unknown]
  - Feeling abnormal [Unknown]
  - Infection [Unknown]
  - Drug ineffective [Unknown]
  - Skin exfoliation [Unknown]
  - Joint stiffness [Unknown]
  - Malaise [Unknown]
  - Pyrexia [Unknown]
  - Psoriasis [Unknown]
  - Asthenia [Unknown]
  - Feeling of despair [Unknown]
  - Libido decreased [Unknown]
  - Tooth loss [Unknown]
  - Influenza [Unknown]
  - Joint swelling [Unknown]
  - Weight decreased [Unknown]
  - Pruritus [Unknown]
  - Alopecia [Unknown]
